FAERS Safety Report 26194825 (Version 1)
Quarter: 2025Q4

REPORT INFORMATION
  Report Type: Spontaneous
  Country: US (occurrence: US)
  Receive Date: 20251224
  Receipt Date: 20251224
  Transmission Date: 20260117
  Serious: Yes (Other)
  Sender: AMGEN
  Company Number: US-AMGEN-USASP2025249383

PATIENT

DRUGS (2)
  1. BEVACIZUMAB [Suspect]
     Active Substance: BEVACIZUMAB
     Indication: Respiratory papilloma
     Dosage: UNK
     Route: 065
  2. BEVACIZUMAB [Suspect]
     Active Substance: BEVACIZUMAB
     Indication: Off label use

REACTIONS (7)
  - Cerebrovascular accident [Unknown]
  - Subcutaneous abscess [Unknown]
  - Uterine cyst [Unknown]
  - Oesophageal obstruction [Unknown]
  - Fatigue [Unknown]
  - Injection site pain [Unknown]
  - Off label use [Unknown]
